FAERS Safety Report 15749168 (Version 1)
Quarter: 2018Q4

REPORT INFORMATION
  Report Type: Report from Study
  Country: DE (occurrence: DE)
  Receive Date: 20181221
  Receipt Date: 20181221
  Transmission Date: 20190205
  Serious: Yes (Hospitalization, Other)
  Sender: FDA-Public Use
  Company Number: PHHY2018DE160338

PATIENT
  Sex: Male

DRUGS (2)
  1. COSENTYX [Suspect]
     Active Substance: SECUKINUMAB
     Indication: PSORIASIS
     Dosage: 300 MG, UNK
     Route: 065
     Dates: start: 20160504
  2. AMOXICILLIN/CLAVULANIC ACID [Concomitant]
     Active Substance: AMOXICILLIN\CLAVULANIC ACID
     Indication: PRODUCT USED FOR UNKNOWN INDICATION
     Dosage: 1 DF (875/125), BID (1-0-1)
     Route: 065
     Dates: end: 20180610

REACTIONS (6)
  - Testicular disorder [Unknown]
  - Scrotal haematocoele [Unknown]
  - Androgen deficiency [Unknown]
  - Testis cancer [Unknown]
  - Seminoma [Recovered/Resolved]
  - Scrotal haematoma [Unknown]

NARRATIVE: CASE EVENT DATE: 201805
